FAERS Safety Report 14969461 (Version 1)
Quarter: 2018Q2

REPORT INFORMATION
  Report Type: Spontaneous
  Country: US (occurrence: US)
  Receive Date: 20180511
  Receipt Date: 20180511
  Transmission Date: 20180711
  Serious: Yes (Other)
  Sender: FDA-Public Use
  Company Number: None

PATIENT
  Age: 70 Year
  Sex: Female

DRUGS (7)
  1. FARYDAK [Suspect]
     Active Substance: PANOBINOSTAT
     Indication: PLASMA CELL MYELOMA
     Route: 048
     Dates: start: 20180418, end: 20180510
  2. VITAMIN D 2000 IU [Concomitant]
     Dates: start: 20180104
  3. DEXAMETHAONSE 4MG [Concomitant]
     Dates: start: 20180104
  4. VELCADE 3.5GM INJECTION [Concomitant]
     Dates: start: 20180104
  5. OXYCODONE 5MG [Concomitant]
     Active Substance: OXYCODONE
     Dates: start: 20180104
  6. ESTER-C 500MG [Concomitant]
     Dates: start: 20180104
  7. MULTIVITAMIN ADULT 50+ [Concomitant]
     Dates: start: 20180104

REACTIONS (2)
  - Gait inability [None]
  - Pain [None]

NARRATIVE: CASE EVENT DATE: 20180510
